FAERS Safety Report 6418802 (Version 29)
Quarter: 2014Q3

REPORT INFORMATION
  Report Type: Spontaneous
  Country: US (occurrence: US)
  Receive Date: 20070919
  Receipt Date: 20140806
  Transmission Date: 20150326
  Serious: Yes (Other)
  Sender: FDA-Public Use
  Company Number: PHEH2007US12136

PATIENT
  Age: 51 Year
  Sex: Male

DRUGS (30)
  1. BIAXIN [Concomitant]
     Active Substance: CLARITHROMYCIN
  2. IBUPROFEN. [Concomitant]
     Active Substance: IBUPROFEN
  3. AREDIA [Suspect]
     Active Substance: PAMIDRONATE DISODIUM
     Dosage: 90 MG, QMO
     Dates: start: 2000, end: 200312
  4. AREDIA [Suspect]
     Active Substance: PAMIDRONATE DISODIUM
     Dosage: 90 MG, QMO
     Route: 042
     Dates: start: 2005, end: 200608
  5. MORPHINE [Concomitant]
     Active Substance: MORPHINE
  6. VALIUM [Concomitant]
     Active Substance: DIAZEPAM
  7. GABAPENTIN. [Concomitant]
     Active Substance: GABAPENTIN
     Dosage: 800 MG, TID
     Route: 048
  8. AREDIA [Suspect]
     Active Substance: PAMIDRONATE DISODIUM
     Dosage: 60 MG,
     Route: 042
     Dates: start: 1999
  9. AMOXICILLIN. [Concomitant]
     Active Substance: AMOXICILLIN
  10. DURAGESIC [Concomitant]
     Active Substance: FENTANYL
  11. KEFLEX [Concomitant]
     Active Substance: CEPHALEXIN
     Dosage: 500 G, QID
     Route: 048
  12. LOVENOX [Concomitant]
     Active Substance: ENOXAPARIN SODIUM
  13. CEPHALEXIN. [Concomitant]
     Active Substance: CEPHALEXIN
     Dosage: 500 MG, QID
     Route: 048
  14. AREDIA [Suspect]
     Active Substance: PAMIDRONATE DISODIUM
     Dosage: 60 MG, Q3MO
     Route: 042
     Dates: start: 199912
  15. CYMBALTA [Suspect]
     Active Substance: DULOXETINE HYDROCHLORIDE
     Indication: ANXIETY
     Dosage: 60 MG, QD
     Route: 048
  16. TYLENOL [Concomitant]
     Active Substance: ACETAMINOPHEN
  17. OXYCONTIN [Concomitant]
     Active Substance: OXYCODONE HYDROCHLORIDE
  18. PERCOCET [Concomitant]
     Active Substance: ACETAMINOPHEN\OXYCODONE HYDROCHLORIDE
  19. LEVAQUIN [Concomitant]
     Active Substance: LEVOFLOXACIN
  20. OXYCODONE [Concomitant]
     Active Substance: OXYCODONE
  21. PRILOSEC [Concomitant]
     Active Substance: OMEPRAZOLE MAGNESIUM
  22. HEP-FLUSH [Concomitant]
  23. ZOMETA [Suspect]
     Active Substance: ZOLEDRONIC ACID
     Indication: OSTEOGENESIS IMPERFECTA
     Dosage: 4 MG, QMO
     Route: 042
     Dates: start: 200402, end: 200507
  24. MS CONTIN [Concomitant]
     Active Substance: MORPHINE SULFATE
  25. DILAUDID [Concomitant]
     Active Substance: HYDROMORPHONE HYDROCHLORIDE
  26. CALCITONIN [Concomitant]
     Active Substance: CALCITONIN
  27. FOSAMAX [Concomitant]
     Active Substance: ALENDRONATE SODIUM
  28. CEFAZOLIN [Concomitant]
     Active Substance: CEFAZOLIN
  29. DEMEROL [Concomitant]
     Active Substance: MEPERIDINE HYDROCHLORIDE
  30. NITROGLYCERIN ^A.L.^ [Concomitant]
     Active Substance: NITROGLYCERIN

REACTIONS (103)
  - Osteonecrosis of jaw [Unknown]
  - Infection [Unknown]
  - Oral pain [Unknown]
  - Lung hyperinflation [Unknown]
  - Ulna fracture [Unknown]
  - Gastrooesophageal reflux disease [Unknown]
  - Spinal compression fracture [Unknown]
  - Spinal cord compression [Unknown]
  - Bone density decreased [Unknown]
  - Vomiting [Unknown]
  - Back pain [Unknown]
  - Muscular weakness [Unknown]
  - Jaw fracture [Unknown]
  - Rib fracture [Unknown]
  - Clavicle fracture [Unknown]
  - Bone pain [Unknown]
  - Sinusitis [Unknown]
  - Aortic dilatation [Unknown]
  - Osteomyelitis [Unknown]
  - Influenza like illness [Recovered/Resolved]
  - Foot fracture [Unknown]
  - Affective disorder [Unknown]
  - Swelling [Unknown]
  - Vocal cord paralysis [Unknown]
  - Fatigue [Unknown]
  - Insomnia [Unknown]
  - Gait disturbance [Unknown]
  - Palpitations [Unknown]
  - Syncope [Unknown]
  - Periodontitis [Unknown]
  - Diarrhoea [Unknown]
  - Major depression [Unknown]
  - Pain [Unknown]
  - Deformity [Unknown]
  - Osteoarthritis [Unknown]
  - Deafness [Unknown]
  - Osteoporosis [Unknown]
  - Osteogenesis imperfecta [Unknown]
  - Osteopenia [Unknown]
  - Soft tissue neoplasm [Unknown]
  - Basal cell carcinoma [Unknown]
  - Nausea [Unknown]
  - Back disorder [Unknown]
  - Headache [Unknown]
  - Hypoaesthesia [Unknown]
  - Muscle spasms [Unknown]
  - Pathological fracture [Unknown]
  - Ligament sprain [Unknown]
  - Tooth fracture [Unknown]
  - Bone atrophy [Unknown]
  - Gingival disorder [Unknown]
  - Chronic obstructive pulmonary disease [Unknown]
  - Spinal fracture [Unknown]
  - Pain in extremity [Unknown]
  - Fall [Unknown]
  - Weight increased [Unknown]
  - Cardiac murmur [Unknown]
  - Bone loss [Unknown]
  - Cellulitis [Recovered/Resolved]
  - Tooth loss [Unknown]
  - Swelling face [Unknown]
  - Cardiomegaly [Unknown]
  - Intervertebral disc degeneration [Unknown]
  - Nasal obstruction [Unknown]
  - Hypoxia [Unknown]
  - Nephrolithiasis [Unknown]
  - Vertigo [Unknown]
  - Dental caries [Unknown]
  - Hyperplasia [Unknown]
  - Joint range of motion decreased [Unknown]
  - Bone disorder [Unknown]
  - Oral infection [Unknown]
  - Alveolar osteitis [Unknown]
  - Aortic arteriosclerosis [Unknown]
  - Emphysema [Unknown]
  - Neoplasm skin [Unknown]
  - Arthralgia [Unknown]
  - Oedema peripheral [Unknown]
  - Bone neoplasm [Unknown]
  - Musculoskeletal chest pain [Unknown]
  - Bursitis [Unknown]
  - Forearm fracture [Unknown]
  - Tooth abscess [Unknown]
  - Trismus [Unknown]
  - Depression [Unknown]
  - Anxiety [Unknown]
  - Pain in jaw [Unknown]
  - Sinus headache [Unknown]
  - Kyphosis [Unknown]
  - Femur fracture [Unknown]
  - Chronic sinusitis [Unknown]
  - Erectile dysfunction [Unknown]
  - Gastric ulcer [Unknown]
  - Seborrhoeic keratosis [Unknown]
  - Oedema [Unknown]
  - Cervical radiculopathy [Unknown]
  - Mass [Unknown]
  - Ear pain [Unknown]
  - Dyspnoea [Unknown]
  - Sinus bradycardia [Unknown]
  - Face injury [Unknown]
  - Pneumothorax [Unknown]
  - Primary sequestrum [Unknown]

NARRATIVE: CASE EVENT DATE: 20070512
